FAERS Safety Report 13301105 (Version 1)
Quarter: 2017Q1

REPORT INFORMATION
  Report Type: Spontaneous
  Country: US (occurrence: US)
  Receive Date: 20170306
  Receipt Date: 20170306
  Transmission Date: 20170428
  Serious: Yes (Other)
  Sender: FDA-Public Use
  Company Number: None

PATIENT
  Age: 55 Year
  Sex: Male
  Weight: 116.22 kg

DRUGS (1)
  1. SODIUM SULFACETAMIDE, SULFUR [Suspect]
     Active Substance: SULFACETAMIDE SODIUM\SULFUR
     Indication: PITYRIASIS ROSEA
     Route: 061
     Dates: start: 201406

REACTIONS (2)
  - Liquid product physical issue [None]
  - Eye irritation [None]

NARRATIVE: CASE EVENT DATE: 20170209
